FAERS Safety Report 12817046 (Version 1)
Quarter: 2016Q4

REPORT INFORMATION
  Report Type: Report from Study
  Country: US (occurrence: US)
  Receive Date: 20161005
  Receipt Date: 20161005
  Transmission Date: 20170207
  Serious: No
  Sender: FDA-Public Use
  Company Number: US-AMGEN-USASP2015098617

PATIENT
  Age: 62 Year
  Sex: Female

DRUGS (1)
  1. PROLIA [Suspect]
     Active Substance: DENOSUMAB
     Indication: OSTEOPOROSIS
     Dosage: UNK
     Route: 065
     Dates: start: 20150612

REACTIONS (24)
  - Pain [Unknown]
  - Asthenia [Unknown]
  - Head discomfort [Not Recovered/Not Resolved]
  - Blood cholesterol increased [Unknown]
  - Peripheral coldness [Unknown]
  - Muscle spasms [Not Recovered/Not Resolved]
  - Oropharyngeal pain [Unknown]
  - Musculoskeletal stiffness [Recovered/Resolved]
  - Weight increased [Unknown]
  - Myalgia [Not Recovered/Not Resolved]
  - Mobility decreased [Unknown]
  - Limb discomfort [Not Recovered/Not Resolved]
  - Pruritus generalised [Unknown]
  - Ear pain [Unknown]
  - Feeling abnormal [Unknown]
  - Abdominal pain upper [Not Recovered/Not Resolved]
  - Pruritus [Unknown]
  - Pain in extremity [Unknown]
  - Headache [Unknown]
  - Sexual dysfunction [Unknown]
  - Bone pain [Not Recovered/Not Resolved]
  - Drug hypersensitivity [Not Recovered/Not Resolved]
  - Fibromyalgia [Not Recovered/Not Resolved]
  - Groin pain [Unknown]

NARRATIVE: CASE EVENT DATE: 2015
